FAERS Safety Report 5795688-7 (Version None)
Quarter: 2008Q2

REPORT INFORMATION
  Report Type: 
  Country: None (occurrence: None)
  Receive Date: 20080630
  Receipt Date: 20080623
  Transmission Date: 20081010
  Serious: No
  Sender: FDA-Public Use
  Company Number: US-BOEHRINGER INGELHEIM GMBH, GERMANY-2008-BP-09894BP

PATIENT
  Sex: Male

DRUGS (3)
  1. SPIRIVA [Suspect]
     Indication: EMPHYSEMA
  2. ADVAIR DISKUS 100/50 [Concomitant]
     Indication: DYSPNOEA
  3. PRESCRIPTION MEDICATION [Concomitant]
     Indication: DYSPNOEA

REACTIONS (1)
  - ADVERSE DRUG REACTION [None]
